FAERS Safety Report 23885605 (Version 1)
Quarter: 2024Q2

REPORT INFORMATION
  Report Type: Spontaneous
  Country: US (occurrence: US)
  Receive Date: 20240522
  Receipt Date: 20240522
  Transmission Date: 20240716
  Serious: Yes (Death, Life-Threatening, Hospitalization)
  Sender: FDA-Public Use
  Company Number: US-Vifor (International) Inc.-VIT-2024-04491

PATIENT
  Age: 64 Year
  Sex: Male
  Weight: 81.4 kg

DRUGS (1)
  1. MIRCERA [Suspect]
     Active Substance: METHOXY POLYETHYLENE GLYCOL-EPOETIN BETA
     Indication: Nephrogenic anaemia
     Route: 040
     Dates: start: 20240503, end: 20240503

REACTIONS (5)
  - Drug hypersensitivity [Fatal]
  - Brain injury [Fatal]
  - Unresponsive to stimuli [Fatal]
  - Blood pressure decreased [Fatal]
  - Heart rate increased [Fatal]

NARRATIVE: CASE EVENT DATE: 20240503
